FAERS Safety Report 6247419-4 (Version None)
Quarter: 2009Q2

REPORT INFORMATION
  Report Type: 
  Country: None (occurrence: None)
  Receive Date: 20090624
  Receipt Date: 20090624
  Transmission Date: 20091009
  Serious: Yes (Hospitalization)
  Sender: FDA-Public Use
  Company Number: None

PATIENT
  Age: 66 Year
  Sex: Male

DRUGS (5)
  1. TOPROL-XL [Suspect]
     Indication: CORONARY ARTERY DISEASE
     Dosage: 50MG PO QD
     Route: 048
  2. TOPROL-XL [Suspect]
     Indication: HYPERTENSION
     Dosage: 50MG PO QD
     Route: 048
  3. VICODIN [Concomitant]
  4. CADUET [Concomitant]
  5. ASPIRIN [Concomitant]

REACTIONS (5)
  - ATRIOVENTRICULAR BLOCK COMPLETE [None]
  - BLOOD PRESSURE DIASTOLIC DECREASED [None]
  - BLOOD PRESSURE SYSTOLIC INCREASED [None]
  - PRESYNCOPE [None]
  - VENTRICULAR EXTRASYSTOLES [None]
